FAERS Safety Report 14152576 (Version 1)
Quarter: 2017Q4

REPORT INFORMATION
  Report Type: Spontaneous
  Country: US (occurrence: US)
  Receive Date: 20171102
  Receipt Date: 20171102
  Transmission Date: 20180321
  Serious: Yes (Life-Threatening, Hospitalization, Other)
  Sender: FDA-Public Use
  Company Number: None

PATIENT
  Sex: Female
  Weight: 59.85 kg

DRUGS (1)
  1. PITOCIN [Suspect]
     Active Substance: OXYTOCIN

REACTIONS (11)
  - Back pain [None]
  - Foetal heart rate abnormal [None]
  - Procedural pain [None]
  - Swelling [None]
  - Disseminated intravascular coagulation [None]
  - Peripheral swelling [None]
  - Post procedural complication [None]
  - Procedural haemorrhage [None]
  - Maternal exposure during delivery [None]
  - Caesarean section [None]
  - Maternal drugs affecting foetus [None]

NARRATIVE: CASE EVENT DATE: 20170106
